FAERS Safety Report 4808837-1 (Version None)
Quarter: 2005Q4

REPORT INFORMATION
  Report Type: 
  Country: None (occurrence: None)
  Receive Date: 20051021
  Receipt Date: 20020808
  Transmission Date: 20060501
  Serious: No
  Sender: FDA-Public Use
  Company Number: DE_020809412

PATIENT
  Age: 41 Year
  Sex: Female

DRUGS (2)
  1. ZYPREXA [Suspect]
     Indication: SCHIZOPHRENIA
     Dosage: 10 MG/DAY
     Dates: start: 19980301
  2. TOREM (TORASEMIDE) [Concomitant]

REACTIONS (2)
  - LABORATORY TEST INTERFERENCE [None]
  - THROMBOCYTOPENIA [None]
